FAERS Safety Report 26152576 (Version 1)
Quarter: 2025Q4

REPORT INFORMATION
  Report Type: Spontaneous
  Country: US (occurrence: US)
  Receive Date: 20251214
  Receipt Date: 20251214
  Transmission Date: 20260118
  Serious: Yes (Hospitalization, Other)
  Sender: CIPLA
  Company Number: US-MLMSERVICE-20251201-PI735597-00312-1

PATIENT

DRUGS (3)
  1. TESTOSTERONE [Suspect]
     Active Substance: TESTOSTERONE
     Indication: Hypogonadism male
     Dosage: UNK TWICE WEEKLY,
     Route: 065
  2. PRASTERONE [Suspect]
     Active Substance: PRASTERONE
     Indication: Hypogonadism male
     Dosage: UNK
     Route: 065
  3. PREGNENOLONE [Concomitant]
     Active Substance: PREGNENOLONE
     Indication: Hypogonadism male
     Dosage: UNK, FOR ABOUT 2 YEARS
     Route: 065

REACTIONS (1)
  - Aortic thrombosis [Unknown]
